FAERS Safety Report 25532535 (Version 1)
Quarter: 2025Q3

REPORT INFORMATION
  Report Type: Spontaneous
  Country: EU (occurrence: EU)
  Receive Date: 20250709
  Receipt Date: 20250709
  Transmission Date: 20251021
  Serious: Yes (Hospitalization, Other)
  Sender: ABBVIE
  Company Number: EU-BAYER-2025A061697

PATIENT
  Age: 25 Year
  Sex: Female

DRUGS (1)
  1. LEVONORGESTREL [Suspect]
     Active Substance: LEVONORGESTREL
     Indication: Contraception
     Route: 015
     Dates: start: 202410

REACTIONS (6)
  - Illness [Not Recovered/Not Resolved]
  - Pelvic infection [Not Recovered/Not Resolved]
  - Abdominal pain lower [Unknown]
  - Vomiting [Unknown]
  - Pelvic inflammatory disease [Not Recovered/Not Resolved]
  - Bedridden [Unknown]
